FAERS Safety Report 9165263 (Version 1)
Quarter: 2013Q1

REPORT INFORMATION
  Report Type: Spontaneous
  Country: RU (occurrence: None)
  Receive Date: 20130301
  Receipt Date: 20130301
  Transmission Date: 20140127
  Serious: Yes (Life-Threatening, Hospitalization)
  Sender: FDA-Public Use
  Company Number: TPA2013A01722

PATIENT
  Age: 52 Year
  Sex: Male

DRUGS (2)
  1. ADENURIC (FEBUXOSTAT) [Suspect]
     Indication: GOUT
     Route: 048
     Dates: start: 20121121, end: 201302
  2. CORONAL (AMIODARONE HYDROCHLORIDE) [Concomitant]

REACTIONS (2)
  - Pulmonary oedema [None]
  - Myocardial infarction [None]
